FAERS Safety Report 5300523-7 (Version None)
Quarter: 2007Q2

REPORT INFORMATION
  Report Type: 
  Country: None (occurrence: None)
  Receive Date: 20070413
  Receipt Date: 20070413
  Transmission Date: 20071010
  Serious: No
  Sender: FDA-Public Use
  Company Number: None

PATIENT
  Sex: Female
  Weight: 113.3993 kg

DRUGS (1)
  1. SOTALOL HCL [Suspect]
     Indication: PALPITATIONS
     Dosage: 1/2 MORNING 1/2 EVENING
     Dates: start: 20070107, end: 20070411

REACTIONS (6)
  - BACK PAIN [None]
  - DIZZINESS [None]
  - DYSPNOEA EXERTIONAL [None]
  - FATIGUE [None]
  - OEDEMA PERIPHERAL [None]
  - STRESS [None]
